FAERS Safety Report 24240842 (Version 2)
Quarter: 2024Q3

REPORT INFORMATION
  Report Type: Report from Study
  Country: US (occurrence: US)
  Receive Date: 20240823
  Receipt Date: 20240912
  Transmission Date: 20241016
  Serious: Yes (Hospitalization, Other)
  Sender: BEIGENE
  Company Number: US-BEIGENE-BGN-2024-013152

PATIENT

DRUGS (2)
  1. BRUKINSA [Suspect]
     Active Substance: ZANUBRUTINIB
     Indication: B-cell lymphoma
     Dosage: 160 MILLIGRAM, BID
     Route: 048
     Dates: start: 20240705
  2. BRUKINSA [Suspect]
     Active Substance: ZANUBRUTINIB
     Dosage: 240 MILLIGRAM (EVENING DOSE TO ONE CAPSULE A DAY)
     Route: 048

REACTIONS (3)
  - Pneumonia [Unknown]
  - Kidney infection [Unknown]
  - Dyspnoea [Unknown]
